FAERS Safety Report 24904164 (Version 1)
Quarter: 2025Q1

REPORT INFORMATION
  Report Type: Spontaneous
  Country: US (occurrence: US)
  Receive Date: 20250130
  Receipt Date: 20250130
  Transmission Date: 20250408
  Serious: Yes (Other)
  Sender: ACCORD
  Company Number: US-Accord-466398

PATIENT
  Age: 63 Year
  Sex: Male

DRUGS (19)
  1. AMLODIPINE [Suspect]
     Active Substance: AMLODIPINE BESYLATE
     Indication: Product used for unknown indication
  2. LISINOPRIL [Suspect]
     Active Substance: LISINOPRIL
     Indication: Product used for unknown indication
  3. METOPROLOL [Suspect]
     Active Substance: METOPROLOL
     Indication: Product used for unknown indication
  4. MIFEPRISTONE [Suspect]
     Active Substance: MIFEPRISTONE
     Indication: Cushing^s syndrome
     Route: 048
     Dates: start: 202411, end: 202412
  5. ACETAMINOPHEN [Concomitant]
     Active Substance: ACETAMINOPHEN
  6. ALLOPURINOL [Concomitant]
     Active Substance: ALLOPURINOL
  7. ATORVASTATIN [Concomitant]
     Active Substance: ATORVASTATIN
  8. DIAZEPAM [Concomitant]
     Active Substance: DIAZEPAM
  9. DAPAGLIFLOZIN PROPANEDIOL MONOH [Concomitant]
  10. GABAPENTIN [Concomitant]
     Active Substance: GABAPENTIN
  11. GENTAMICIN [Concomitant]
     Active Substance: GENTAMICIN
  12. IBU [Concomitant]
     Active Substance: IBUPROFEN
  13. KEPPRA [Concomitant]
     Active Substance: LEVETIRACETAM
  14. MELOXICAM [Concomitant]
     Active Substance: MELOXICAM
  15. METFORMIN [Concomitant]
     Active Substance: METFORMIN HYDROCHLORIDE
  16. TIRZEPATIDE [Concomitant]
     Active Substance: TIRZEPATIDE
  17. NYSTATIN [Concomitant]
     Active Substance: NYSTATIN
  18. VENLAFAXINE [Concomitant]
     Active Substance: VENLAFAXINE HYDROCHLORIDE
  19. CARIPRAZINE [Concomitant]
     Active Substance: CARIPRAZINE

REACTIONS (4)
  - Hypotension [Recovered/Resolved]
  - Fall [Recovered/Resolved]
  - Blood glucose increased [Unknown]
  - Fatigue [Not Recovered/Not Resolved]

NARRATIVE: CASE EVENT DATE: 20241201
